FAERS Safety Report 25136447 (Version 2)
Quarter: 2025Q2

REPORT INFORMATION
  Report Type: Spontaneous
  Country: US (occurrence: US)
  Receive Date: 20250328
  Receipt Date: 20250502
  Transmission Date: 20250717
  Serious: Yes (Other)
  Sender: GSK
  Company Number: US-GLAXOSMITHKLINE INC-US2025034769

PATIENT

DRUGS (2)
  1. BENLYSTA [Suspect]
     Active Substance: BELIMUMAB
     Indication: Product used for unknown indication
     Dates: start: 202501
  2. BENLYSTA [Suspect]
     Active Substance: BELIMUMAB
     Indication: Product used for unknown indication

REACTIONS (4)
  - Cerebrospinal fluid leakage [Unknown]
  - Cough [Unknown]
  - Respiratory tract infection viral [Unknown]
  - Product dose omission issue [Unknown]
